FAERS Safety Report 16222570 (Version 1)
Quarter: 2019Q2

REPORT INFORMATION
  Report Type: Spontaneous
  Country: US (occurrence: US)
  Receive Date: 20190419
  Receipt Date: 20190419
  Transmission Date: 20190711
  Serious: No
  Sender: FDA-Public Use
  Company Number: None

PATIENT
  Age: 31 Year
  Sex: Female
  Weight: 65.25 kg

DRUGS (3)
  1. METHYLPHENIDATE. [Concomitant]
     Active Substance: METHYLPHENIDATE
  2. XYREM [Suspect]
     Active Substance: SODIUM OXYBATE
     Indication: NARCOLEPSY
     Dosage: ?          QUANTITY:3 GRAM;OTHER FREQUENCY:TWICE A NIGHT;?
     Route: 048
     Dates: start: 20190318
  3. AMITRIPTYLINE [Concomitant]
     Active Substance: AMITRIPTYLINE

REACTIONS (10)
  - Nausea [None]
  - Hypotension [None]
  - Dizziness [None]
  - Tremor [None]
  - Paraesthesia [None]
  - Heart rate irregular [None]
  - Tachycardia [None]
  - Metrorrhagia [None]
  - Constipation [None]
  - Polymenorrhoea [None]

NARRATIVE: CASE EVENT DATE: 20190401
